FAERS Safety Report 7822865-3 (Version None)
Quarter: 2011Q4

REPORT INFORMATION
  Report Type: 
  Country: None (occurrence: None)
  Receive Date: 20111018
  Receipt Date: 20110713
  Transmission Date: 20120403
  Serious: No
  Sender: FDA-Public Use
  Company Number: US-ASTRAZENECA-2011SE42350

PATIENT

DRUGS (10)
  1. GABAPENTIN [Concomitant]
     Route: 048
  2. HYDROCODONE BITARTRATE AND ACETAMINOPHEN [Concomitant]
     Dosage: 7.5/500 ONE TABLET THREE TIMES A DAY
     Route: 048
  3. METFORMIN HCL [Concomitant]
     Route: 048
  4. HYDROCODONE BITARTRATE AND ACETAMINOPHEN [Concomitant]
     Dosage: 7.5/500 ONE TABLET EVERY EIGHT HOURS IF NEEDED
     Route: 048
  5. LISINOPRIL [Suspect]
     Route: 048
  6. FUROSEMIDE [Concomitant]
     Route: 048
  7. LANTUS [Concomitant]
     Route: 058
  8. SYMBICORT [Suspect]
     Dosage: 160/4.5 MCG, TWO PUFFS TWO TIMES A DAY
     Route: 055
  9. HYDROCODONE BITARTRATE AND ACETAMINOPHEN [Concomitant]
     Dosage: 7.5/500 ONE TABLET TWO TIMES A DAY
     Route: 048
  10. POTASSIUM [Concomitant]
     Route: 048

REACTIONS (4)
  - COUGH [None]
  - ANXIETY [None]
  - WHEEZING [None]
  - DYSPNOEA [None]
